FAERS Safety Report 23462391 (Version 1)
Quarter: 2024Q1

REPORT INFORMATION
  Report Type: Spontaneous
  Country: GB (occurrence: None)
  Receive Date: 20240131
  Receipt Date: 20240131
  Transmission Date: 20240410
  Serious: Yes (Life-Threatening, Disabling, Other)
  Sender: FDA-Public Use
  Company Number: 2024A021447

PATIENT
  Age: 50 Year
  Sex: Female
  Weight: 78 kg

DRUGS (15)
  1. DAPAGLIFLOZIN [Suspect]
     Active Substance: DAPAGLIFLOZIN
     Indication: Diabetes mellitus
     Dosage: 10MG MANE; ; UNKNOWN
     Dates: end: 20240119
  2. ATENOLOL [Concomitant]
     Active Substance: ATENOLOL
  3. ATORVASTATIN [Concomitant]
     Active Substance: ATORVASTATIN
  4. COCODAMOL [Concomitant]
     Active Substance: ACETAMINOPHEN\CODEINE PHOSPHATE
  5. ESTRADIOL [Concomitant]
     Active Substance: ESTRADIOL
  6. FELODIPINE [Concomitant]
     Active Substance: FELODIPINE
  7. GABAPENTIN [Concomitant]
     Active Substance: GABAPENTIN
  8. LANTUS [Concomitant]
     Active Substance: INSULIN GLARGINE
  9. METFORMIN [Concomitant]
     Active Substance: METFORMIN HYDROCHLORIDE
     Indication: Diabetes mellitus
  10. OMEPRAZOLE [Concomitant]
     Active Substance: OMEPRAZOLE
  11. PROPRANOLOL [Concomitant]
     Active Substance: PROPRANOLOL HYDROCHLORIDE
  12. RAMIPRIL [Concomitant]
     Active Substance: RAMIPRIL
  13. SEMAGLUTIDE [Concomitant]
     Active Substance: SEMAGLUTIDE
  14. SERTRALINE [Concomitant]
     Active Substance: SERTRALINE HYDROCHLORIDE
  15. TRAMADOL [Concomitant]
     Active Substance: TRAMADOL\TRAMADOL HYDROCHLORIDE

REACTIONS (2)
  - Medication error [Unknown]
  - Diabetic ketoacidosis [Recovered/Resolved]

NARRATIVE: CASE EVENT DATE: 20240119
